FAERS Safety Report 5189760-2 (Version None)
Quarter: 2006Q4

REPORT INFORMATION
  Report Type: 
  Country: None (occurrence: None)
  Receive Date: 20061218
  Receipt Date: 20061201
  Transmission Date: 20070319
  Serious: Yes (Hospitalization)
  Sender: FDA-Public Use
  Company Number: US-2006-026625

PATIENT
  Age: 31 Year
  Sex: Female
  Weight: 45.4 kg

DRUGS (3)
  1. BETASERON [Suspect]
     Indication: RELAPSING-REMITTING MULTIPLE SCLEROSIS
     Dosage: SEE IMAGE
     Route: 058
     Dates: start: 20060707, end: 20060822
  2. BETASERON [Suspect]
     Indication: RELAPSING-REMITTING MULTIPLE SCLEROSIS
     Dosage: SEE IMAGE
     Route: 058
     Dates: start: 20061005
  3. MULTIVITAMINS (RETINOL, PANTHENOL) [Concomitant]

REACTIONS (6)
  - BRAIN OEDEMA [None]
  - CEREBRAL HAEMORRHAGE [None]
  - FALL [None]
  - HEADACHE [None]
  - LOSS OF CONSCIOUSNESS [None]
  - SKULL FRACTURE [None]
